FAERS Safety Report 7930120-6 (Version None)
Quarter: 2011Q4

REPORT INFORMATION
  Report Type: 
  Country: None (occurrence: None)
  Receive Date: 20111121
  Receipt Date: 20111115
  Transmission Date: 20120403
  Serious: Yes (Hospitalization)
  Sender: FDA-Public Use
  Company Number: GB-GENZYME-CLOF-1000362

PATIENT
  Sex: Female

DRUGS (3)
  1. EVOLTRA [Suspect]
     Dosage: UNK
     Route: 065
     Dates: start: 20090126, end: 20090130
  2. EVOLTRA [Suspect]
     Indication: ACUTE LEUKAEMIA
     Dosage: UNK
     Route: 065
     Dates: start: 20081124, end: 20081128
  3. EVOLTRA [Suspect]
     Dosage: UNK
     Route: 065
     Dates: start: 20090302, end: 20090306

REACTIONS (3)
  - DEEP VEIN THROMBOSIS [None]
  - NEUTROPENIC SEPSIS [None]
  - PANCYTOPENIA [None]
